FAERS Safety Report 9125134 (Version 1)
Quarter: 2013Q1

REPORT INFORMATION
  Report Type: Spontaneous
  Country: HU (occurrence: HU)
  Receive Date: 20130227
  Receipt Date: 20130227
  Transmission Date: 20140127
  Serious: Yes (Life-Threatening, Other)
  Sender: FDA-Public Use
  Company Number: HU-WATSON-2013-03014

PATIENT
  Age: 4 Year
  Sex: Female

DRUGS (17)
  1. PREDNISOLONE (UNKNOWN) [Suspect]
     Indication: B PRECURSOR TYPE ACUTE LEUKAEMIA
     Dosage: CCORDING TO ALL IC BFM 2009 PROTOCOL
     Route: 065
  2. FLUCONAZOLE [Suspect]
     Indication: EVIDENCE BASED TREATMENT
     Dosage: UNK, UNKNOWN
     Route: 051
  3. VINCRISTINE [Suspect]
     Indication: B PRECURSOR TYPE ACUTE LEUKAEMIA
     Dosage: ACCORDING TO ALL IC BFM 2009 PROTOCOL
     Route: 065
  4. METHOTREXATE [Suspect]
     Indication: B PRECURSOR TYPE ACUTE LEUKAEMIA
     Dosage: ACCORDING TO ALL IC BFM 2009 PROTOCOL
     Route: 037
  5. DAUNORUBICIN [Suspect]
     Indication: B PRECURSOR TYPE ACUTE LEUKAEMIA
     Dosage: ACCORDING TO ALL IC BFM 2009 PROTOCOL
     Route: 065
  6. ASPARAGINASE [Suspect]
     Indication: B PRECURSOR TYPE ACUTE LEUKAEMIA
     Dosage: ACCORDING TO ALL IC BFM 2009 PROTOCOL
     Route: 065
  7. AMPHOTERICIN B [Suspect]
     Indication: ASPERGILLUS INFECTION
     Dosage: UNK, UNKNOWN
     Route: 042
  8. PIPERACILLIN/TAZOBACTAM [Concomitant]
     Indication: EVIDENCE BASED TREATMENT
     Dosage: UNK, UNKNOWN
     Route: 065
  9. AMIKACIN [Concomitant]
     Indication: EVIDENCE BASED TREATMENT
     Dosage: UNK, UNKNOWN
     Route: 065
  10. ALBUMIN [Concomitant]
     Indication: PRODUCT USED FOR UNKNOWN INDICATION
     Dosage: UNK, UNKNOWN
     Route: 065
  11. CLINDAMYCIN [Concomitant]
     Indication: ANAL ABSCESS
     Dosage: UNK, UNKNOWN
     Route: 065
  12. CIPROFLOXACIN [Concomitant]
     Indication: ANAL ABSCESS
     Dosage: UNK, UNKNOWN
     Route: 065
  13. MEROPENEM [Concomitant]
     Indication: ANAL ABSCESS
     Dosage: UNK, UNKNOWN
     Route: 065
  14. VANCOMYCIN [Concomitant]
     Indication: ANAL ABSCESS
     Dosage: UNK, UNKNOWN
     Route: 065
  15. PENTAGLOBIN                        /00025201/ [Concomitant]
     Indication: PRODUCT USED FOR UNKNOWN INDICATION
     Dosage: UNK, UNKNOWN
     Route: 065
  16. GRANULOCYTE COLONY STIMULATING FACTOR [Concomitant]
     Indication: PRODUCT USED FOR UNKNOWN INDICATION
     Dosage: UNK, UNKNOWN
     Route: 065
  17. IMIPENEM [Concomitant]
     Indication: PSEUDOMONAL BACTERAEMIA
     Dosage: UNK, UNKNOWN
     Route: 065

REACTIONS (11)
  - Febrile bone marrow aplasia [Recovered/Resolved]
  - Proctitis [Recovered/Resolved]
  - Pseudomonal bacteraemia [Recovered/Resolved]
  - Bronchopulmonary aspergillosis [Recovered/Resolved]
  - Enteritis leukopenic [Recovered/Resolved]
  - Anal abscess [Recovered/Resolved]
  - Anal fistula [Recovered/Resolved]
  - Pathogen resistance [Recovered/Resolved]
  - Diarrhoea [Recovered/Resolved]
  - Drug ineffective [Recovered/Resolved]
  - Pseudomonas infection [None]
